FAERS Safety Report 11365915 (Version 3)
Quarter: 2015Q4

REPORT INFORMATION
  Report Type: Spontaneous
  Country: US (occurrence: US)
  Receive Date: 20150811
  Receipt Date: 20151207
  Transmission Date: 20160304
  Serious: Yes (Hospitalization)
  Sender: FDA-Public Use
  Company Number: US-PFIZER INC-2015264187

PATIENT
  Age: 66 Year
  Sex: Female
  Weight: 78 kg

DRUGS (19)
  1. KLONOPIN [Concomitant]
     Active Substance: CLONAZEPAM
     Indication: MYOCLONUS
     Dosage: 0.5 DF, 1X/DAY
     Dates: start: 1997
  2. METOPROLOL TARTRATE. [Concomitant]
     Active Substance: METOPROLOL TARTRATE
     Indication: SINUS TACHYCARDIA
     Dosage: 25 MG, UNK
  3. PROTONIX [Concomitant]
     Active Substance: PANTOPRAZOLE SODIUM
     Indication: VARICES OESOPHAGEAL
     Dosage: 40 MG, 1X/DAY
     Dates: start: 2012
  4. ZANTAC [Concomitant]
     Active Substance: RANITIDINE HYDROCHLORIDE
     Indication: GASTROOESOPHAGEAL REFLUX DISEASE
     Dosage: 300 MG, 1X/DAY
     Dates: start: 2012
  5. ESTRING [Suspect]
     Active Substance: ESTRADIOL
     Indication: VULVOVAGINAL DRYNESS
     Dosage: 2 MG, EVERY 3 MONTHS
     Route: 067
     Dates: start: 2008
  6. MULTIVITAMIN [Concomitant]
     Active Substance: VITAMINS
     Dosage: UNK, 1X/DAY
  7. PAROXETINE HCL [Concomitant]
     Active Substance: PAROXETINE HYDROCHLORIDE
     Indication: MYOCLONUS
     Dosage: 12.5 EXTENDED RELEASE, 1X/DAY
     Dates: start: 1997
  8. ESTRING [Suspect]
     Active Substance: ESTRADIOL
     Indication: SCLERODERMA
  9. CORGARD [Concomitant]
     Active Substance: NADOLOL
     Indication: SINUS TACHYCARDIA
     Dosage: 20 MG, 2X/DAY
     Dates: start: 1988, end: 201509
  10. ATORVASTATIN [Concomitant]
     Active Substance: ATORVASTATIN
     Indication: BLOOD CHOLESTEROL ABNORMAL
     Dosage: UNK
     Dates: start: 201510
  11. LOVASTATIN. [Concomitant]
     Active Substance: LOVASTATIN
     Indication: BLOOD CHOLESTEROL ABNORMAL
     Dosage: 40 MG, 1X/DAY
     Dates: start: 2008
  12. ESTRING [Suspect]
     Active Substance: ESTRADIOL
     Indication: SJOGREN^S SYNDROME
  13. SYMBICORT [Concomitant]
     Active Substance: BUDESONIDE\FORMOTEROL FUMARATE DIHYDRATE
     Indication: EMPHYSEMA
     Dosage: 2 DF, 2X/DAY
     Dates: start: 2013
  14. ESTRING [Suspect]
     Active Substance: ESTRADIOL
     Indication: VAGINAL HAEMORRHAGE
  15. CALCIUM WITH D3 [Concomitant]
     Dosage: UNK, 1X/DAY
     Dates: start: 1994
  16. TUMS [Concomitant]
     Active Substance: CALCIUM CARBONATE
     Indication: GASTROOESOPHAGEAL REFLUX DISEASE
     Dosage: UNK
  17. RESTASIS [Concomitant]
     Active Substance: CYCLOSPORINE
     Indication: DRY EYE
     Dosage: 1 DF, 2X/DAY (1 DROP IN THE MORNING AND 1 DROP AT NIGHT)
     Dates: start: 2008
  18. SPIRIVA [Concomitant]
     Active Substance: TIOTROPIUM BROMIDE MONOHYDRATE
     Indication: EMPHYSEMA
     Dosage: 18 ?G, 1X/DAY
     Dates: start: 2013
  19. D-MANNOSE [Concomitant]
     Indication: URINARY TRACT INFECTION
     Dosage: UNK
     Dates: start: 2013

REACTIONS (1)
  - Lung adenocarcinoma stage II [Recovered/Resolved]

NARRATIVE: CASE EVENT DATE: 201309
